FAERS Safety Report 16804274 (Version 7)
Quarter: 2020Q1

REPORT INFORMATION
  Report Type: Spontaneous
  Country: JP (occurrence: JP)
  Receive Date: 20190913
  Receipt Date: 20200129
  Transmission Date: 20200409
  Serious: Yes (Life-Threatening, Hospitalization, Disabling)
  Sender: FDA-Public Use
  Company Number: JP-TERSERA THERAPEUTICS LLC-2019TRS001902

PATIENT

DRUGS (13)
  1. URIEF [Concomitant]
     Active Substance: SILODOSIN
     Indication: DYSURIA
     Dosage: 4 MILLIGRAM, BID
     Route: 048
     Dates: start: 20180801, end: 20190817
  2. LIVALO [Concomitant]
     Active Substance: PITAVASTATIN CALCIUM
     Indication: THROMBOSIS PROPHYLAXIS
     Dosage: 1 MILLIGRAM, QD
     Route: 048
     Dates: start: 20180801
  3. BAYASPIRIN [Suspect]
     Active Substance: ASPIRIN
     Indication: THROMBOSIS PROPHYLAXIS
     Dosage: 100 MILLIGRAM, QD
     Route: 048
     Dates: start: 20180801, end: 20190817
  4. CASODEX [Suspect]
     Active Substance: BICALUTAMIDE
     Dosage: 80 MILLIGRAM, QD
     Route: 048
     Dates: start: 20190902
  5. LANSOPRAZOLE. [Concomitant]
     Active Substance: LANSOPRAZOLE
     Indication: GASTROOESOPHAGEAL REFLUX DISEASE
     Dosage: 15 MILLIGRAM, QD
     Route: 048
     Dates: start: 20180801
  6. AMLODIPINE [Concomitant]
     Active Substance: AMLODIPINE BESYLATE
     Indication: HYPERTENSION
     Dosage: 5 MILLIGRAM, QD
     Route: 048
     Dates: start: 20180801
  7. BETANIS [Concomitant]
     Active Substance: MIRABEGRON
     Indication: PRODUCT USED FOR UNKNOWN INDICATION
     Dosage: 50 MILLIGRAM, QD
     Route: 048
     Dates: start: 20190617, end: 20190817
  8. ZOLADEX [Suspect]
     Active Substance: GOSERELIN ACETATE
     Indication: PROSTATE CANCER
     Dosage: 3.6 MILLIGRAM, EVERY 4 WEEKS
     Route: 058
     Dates: start: 20190520, end: 20190817
  9. CASODEX [Suspect]
     Active Substance: BICALUTAMIDE
     Indication: PROSTATE CANCER
     Dosage: 80 MILLIGRAM, QD
     Route: 048
     Dates: start: 20190617, end: 20190817
  10. BETAHISTINE MESILATE [Concomitant]
     Active Substance: BETAHISTINE MESILATE
     Indication: DIZZINESS
     Dosage: 6 MILLIGRAM, TID
     Route: 048
     Dates: start: 20180801
  11. AVOLVE [Concomitant]
     Active Substance: DUTASTERIDE
     Indication: DYSURIA
     Dosage: 0.5 MILLIGRAM, QD
     Route: 048
     Dates: start: 20180801, end: 20190817
  12. CILOSTAZOL. [Concomitant]
     Active Substance: CILOSTAZOL
     Indication: THROMBOSIS PROPHYLAXIS
     Dosage: 100 MILLIGRAM, BID
     Route: 048
     Dates: start: 20180926, end: 20190817
  13. ANTICOAGULANT CIT PHOS DEX ADENINE [Concomitant]
     Active Substance: CITRIC ACID MONOHYDRATE\DEXTROSE\SODIUM CITRATE\SODIUM PHOSPHATE, MONOBASIC
     Indication: CEREBRAL INFARCTION
     Dosage: UNK
     Route: 065

REACTIONS (5)
  - Chronic myeloid leukaemia [Recovering/Resolving]
  - Arterial injury [Unknown]
  - Abdominal wall haematoma [Recovering/Resolving]
  - Cerebral infarction [Not Recovered/Not Resolved]
  - Monoplegia [Not Recovered/Not Resolved]

NARRATIVE: CASE EVENT DATE: 20190805
